FAERS Safety Report 10310804 (Version 5)
Quarter: 2014Q4

REPORT INFORMATION
  Report Type: Spontaneous
  Country: US (occurrence: US)
  Receive Date: 20140717
  Receipt Date: 20141113
  Transmission Date: 20150528
  Serious: No
  Sender: FDA-Public Use
  Company Number: US-PFIZER INC-2014194288

PATIENT
  Age: 76 Year
  Sex: Female

DRUGS (19)
  1. GEODON [Concomitant]
     Active Substance: ZIPRASIDONE HYDROCHLORIDE\ZIPRASIDONE MESYLATE
     Dosage: 20 MG, 2X/DAY
     Route: 048
  2. INLYTA [Suspect]
     Active Substance: AXITINIB
     Indication: METASTATIC RENAL CELL CARCINOMA
     Dosage: 5 MG, 2X/DAY (1 TABLET TWICE DAILY)
     Route: 048
     Dates: start: 20140702
  3. INLYTA [Suspect]
     Active Substance: AXITINIB
     Dosage: 7 MG, 2X/DAY
     Dates: start: 20140801
  4. INLYTA [Suspect]
     Active Substance: AXITINIB
     Dosage: 5 MG, DAILY
  5. KLONOPIN [Concomitant]
     Active Substance: CLONAZEPAM
     Indication: SLEEP DISORDER
     Dosage: 1 MG (TAB) 1-2 TABLETS AT BEDTIME
     Route: 048
  6. KLONOPIN [Concomitant]
     Active Substance: CLONAZEPAM
     Dosage: 1 MG (TAB) 1-2 TABLETS AT BEDTIME
  7. VITAMIN D [Concomitant]
     Active Substance: CHOLECALCIFEROL
     Dosage: 1000 IU, DAILY
     Route: 048
  8. INLYTA [Suspect]
     Active Substance: AXITINIB
     Dosage: 5 MG, 2X/DAY
     Route: 048
     Dates: start: 20140820
  9. INLYTA [Suspect]
     Active Substance: AXITINIB
     Dosage: UNK
  10. PAZOPANIB [Suspect]
     Active Substance: PAZOPANIB
     Dosage: UNK, AT LEAST A FEW DAYS
     Dates: end: 20140820
  11. RESTORIL [Concomitant]
     Active Substance: TEMAZEPAM
     Indication: SLEEP DISORDER
     Dosage: 30 MG, AS NEEDED
     Route: 048
  12. VITAMIN B12 [Concomitant]
     Active Substance: CYANOCOBALAMIN
     Dosage: 1000 ?G, DAILY
     Route: 048
  13. PAZOPANIB [Suspect]
     Active Substance: PAZOPANIB
     Dosage: 800 MG, DAILY
     Route: 048
     Dates: start: 20130601
  14. PAZOPANIB [Suspect]
     Active Substance: PAZOPANIB
     Dosage: 400 MG, DAILY
     Dates: start: 20140321, end: 201407
  15. ZOLOFT [Concomitant]
     Active Substance: SERTRALINE HYDROCHLORIDE
     Dosage: 100 MG, DAILY
     Route: 048
  16. PAZOPANIB [Suspect]
     Active Substance: PAZOPANIB
     Dosage: 400 MG, 2X/DAY
     Route: 048
  17. PAZOPANIB [Suspect]
     Active Substance: PAZOPANIB
     Dosage: 600 MG, 2X/DAY
     Dates: end: 20140311
  18. LOVENOX [Concomitant]
     Active Substance: ENOXAPARIN SODIUM
     Dosage: 100 MG/ML, 1X/DAY
     Route: 058
  19. COMPAZINE [Concomitant]
     Active Substance: PROCHLORPERAZINE MALEATE
     Indication: NAUSEA
     Dosage: 1 TABLET (5 MG) 4 TIMES DAILY AS NEEDED

REACTIONS (14)
  - Headache [Unknown]
  - Renal pain [Unknown]
  - Injury [Recovering/Resolving]
  - Haematuria [Unknown]
  - Breast pain [Unknown]
  - Inappropriate schedule of drug administration [Unknown]
  - Disease progression [Unknown]
  - Haematoma [Recovering/Resolving]
  - Diarrhoea [Recovering/Resolving]
  - Chills [Unknown]
  - Pyrexia [Unknown]
  - Metastatic renal cell carcinoma [Unknown]
  - Alopecia [Unknown]
  - Blood magnesium decreased [Unknown]
